FAERS Safety Report 16929163 (Version 2)
Quarter: 2020Q2

REPORT INFORMATION
  Report Type: Report from Study
  Country: ZA (occurrence: ZA)
  Receive Date: 20191017
  Receipt Date: 20200516
  Transmission Date: 20200713
  Serious: Yes (Hospitalization)
  Sender: FDA-Public Use
  Company Number: NVSC2019ZA001821

PATIENT
  Age: 51 Year
  Sex: Male

DRUGS (1)
  1. TUVIGIN [Suspect]
     Active Substance: FINGOLIMOD HYDROCHLORIDE
     Indication: RELAPSING-REMITTING MULTIPLE SCLEROSIS
     Dosage: 0.5 MG, QD
     Route: 065
     Dates: start: 20181120

REACTIONS (1)
  - Relapsing multiple sclerosis [Unknown]

NARRATIVE: CASE EVENT DATE: 20181126
